FAERS Safety Report 13855609 (Version 3)
Quarter: 2021Q1

REPORT INFORMATION
  Report Type: Spontaneous
  Country: US (occurrence: US)
  Receive Date: 20170810
  Receipt Date: 20210303
  Transmission Date: 20210419
  Serious: Yes (Death)
  Sender: FDA-Public Use
  Company Number: US-VIFOR (INTERNATIONAL) INC.-VIT-2017-05221

PATIENT
  Age: 58 Year
  Sex: Male

DRUGS (189)
  1. VELTASSA [Suspect]
     Active Substance: PATIROMER
     Route: 048
     Dates: start: 20201216, end: 20210202
  2. TYLENOL [Concomitant]
     Active Substance: ACETAMINOPHEN
     Dates: start: 20190102, end: 20201028
  3. RENVELA [Concomitant]
     Active Substance: SEVELAMER CARBONATE
     Dosage: WITH MEALS
     Dates: start: 20170111, end: 20170118
  4. RENVELA [Concomitant]
     Active Substance: SEVELAMER CARBONATE
     Dosage: WITH MEALS
     Dates: start: 20181010, end: 20181221
  5. NITROSTAT [Concomitant]
     Active Substance: NITROGLYCERIN
     Indication: CHEST PAIN
     Route: 060
     Dates: start: 20151228, end: 20180221
  6. METOPROLOL TARTRATE. [Concomitant]
     Active Substance: METOPROLOL TARTRATE
     Dates: start: 20180221, end: 20190102
  7. METOPROLOL TARTRATE. [Concomitant]
     Active Substance: METOPROLOL TARTRATE
     Dates: start: 20190102, end: 20190315
  8. LEXAPRO [Concomitant]
     Active Substance: ESCITALOPRAM OXALATE
     Dosage: AT BEDTIME
     Dates: start: 20151104, end: 20180221
  9. ERGOCALCIFEROL. [Concomitant]
     Active Substance: ERGOCALCIFEROL
     Dosage: 2K UI
     Dates: start: 20170215, end: 20180221
  10. ATORVASTATIN CALCIUM. [Concomitant]
     Active Substance: ATORVASTATIN CALCIUM
     Dosage: AT BEDTIME
     Dates: start: 20191223, end: 20191223
  11. BUPROPION. [Concomitant]
     Active Substance: BUPROPION
     Dates: start: 20171020, end: 20180221
  12. DAILY?VITE [Concomitant]
     Dates: start: 20170315, end: 20180221
  13. DAILY?VITE [Concomitant]
     Route: 048
     Dates: start: 20201023, end: 20201028
  14. LACTULOSE. [Concomitant]
     Active Substance: LACTULOSE
     Dates: start: 20180221, end: 20180314
  15. MIDODRINE [Concomitant]
     Active Substance: MIDODRINE
     Dates: start: 20180214, end: 20180214
  16. SENSIPAR [Concomitant]
     Active Substance: CINACALCET HYDROCHLORIDE
     Dates: start: 20180214, end: 20180214
  17. SENSIPAR [Concomitant]
     Active Substance: CINACALCET HYDROCHLORIDE
     Dates: start: 20180214, end: 20180221
  18. SENSIPAR [Concomitant]
     Active Substance: CINACALCET HYDROCHLORIDE
     Dates: start: 20180725, end: 20190102
  19. SENSIPAR [Concomitant]
     Active Substance: CINACALCET HYDROCHLORIDE
     Dates: start: 20190102, end: 20190419
  20. VELTASSA [Suspect]
     Active Substance: PATIROMER
     Route: 048
     Dates: start: 20180425, end: 20190102
  21. RENVELA [Concomitant]
     Active Substance: SEVELAMER CARBONATE
     Dosage: WITH MEALS
     Dates: start: 20160511, end: 20160712
  22. RENVELA [Concomitant]
     Active Substance: SEVELAMER CARBONATE
     Dosage: WITH MEALS
     Dates: start: 20160907, end: 20160907
  23. RENVELA [Concomitant]
     Active Substance: SEVELAMER CARBONATE
     Dosage: WITH MEALS
     Dates: start: 20201211, end: 20210202
  24. PLAVIX [Concomitant]
     Active Substance: CLOPIDOGREL BISULFATE
  25. LEXAPRO [Concomitant]
     Active Substance: ESCITALOPRAM OXALATE
     Dosage: AT BEDTIME
     Dates: start: 20190315, end: 20201028
  26. KAYEXALATE [Concomitant]
     Active Substance: SODIUM POLYSTYRENE SULFONATE
     Dates: start: 20160330, end: 20180221
  27. GABAPENTIN. [Concomitant]
     Active Substance: GABAPENTIN
     Dosage: AT BEDTIME
     Dates: start: 20200520, end: 20200528
  28. CLOPIDOGREL [Concomitant]
     Active Substance: CLOPIDOGREL BISULFATE
     Dates: start: 20201130, end: 20210202
  29. DAILY?VITE [Concomitant]
     Route: 048
     Dates: start: 20181114, end: 20190102
  30. DAILY?VITE [Concomitant]
     Route: 048
     Dates: start: 20200413, end: 20200803
  31. DAILY?VITE [Concomitant]
     Route: 048
     Dates: start: 20201130, end: 20210202
  32. LACTULOSE. [Concomitant]
     Active Substance: LACTULOSE
     Dates: start: 20170804, end: 20170804
  33. LUBIPROSTONE [Concomitant]
     Active Substance: LUBIPROSTONE
     Dates: start: 20171220, end: 20171220
  34. LUBIPROSTONE [Concomitant]
     Active Substance: LUBIPROSTONE
     Dates: start: 20180221, end: 20190102
  35. MIDODRINE [Concomitant]
     Active Substance: MIDODRINE
     Dates: start: 20170104, end: 20171113
  36. MIDODRINE [Concomitant]
     Active Substance: MIDODRINE
     Dates: start: 20180214, end: 20180221
  37. SENSIPAR [Concomitant]
     Active Substance: CINACALCET HYDROCHLORIDE
     Dates: start: 20171129, end: 20171129
  38. SENSIPAR [Concomitant]
     Active Substance: CINACALCET HYDROCHLORIDE
     Dates: start: 20190419, end: 20190605
  39. SENSIPAR [Concomitant]
     Active Substance: CINACALCET HYDROCHLORIDE
     Dates: start: 20201023, end: 20201028
  40. SENSIPAR [Concomitant]
     Active Substance: CINACALCET HYDROCHLORIDE
     Dates: start: 20201130, end: 20201202
  41. LYRICA [Concomitant]
     Active Substance: PREGABALIN
     Dates: start: 20170127, end: 20170215
  42. TYLENOL [Concomitant]
     Active Substance: ACETAMINOPHEN
     Dates: start: 20180221, end: 20190102
  43. RENVELA [Concomitant]
     Active Substance: SEVELAMER CARBONATE
     Dosage: WITH MEALS
     Dates: start: 20181221, end: 20190102
  44. RENVELA [Concomitant]
     Active Substance: SEVELAMER CARBONATE
     Dosage: WITH MEALS
     Dates: start: 20200413, end: 20201028
  45. METOPROLOL TARTRATE. [Concomitant]
     Active Substance: METOPROLOL TARTRATE
     Dates: start: 20190315, end: 20190910
  46. KAYEXALATE [Concomitant]
     Active Substance: SODIUM POLYSTYRENE SULFONATE
     Dates: start: 20160316, end: 20160330
  47. ERGOCALCIFEROL. [Concomitant]
     Active Substance: ERGOCALCIFEROL
     Dosage: 2K UI
     Dates: start: 20180221, end: 20190102
  48. ATORVASTATIN CALCIUM. [Concomitant]
     Active Substance: ATORVASTATIN CALCIUM
     Dosage: AT BEDTIME
     Dates: start: 20180221, end: 20190102
  49. ASPIRIN. [Concomitant]
     Active Substance: ASPIRIN
     Dates: start: 20180221, end: 20190102
  50. BUPROPION. [Concomitant]
     Active Substance: BUPROPION
     Dates: start: 20180221, end: 20180314
  51. DAILY?VITE [Concomitant]
     Route: 048
     Dates: start: 20190102, end: 20190513
  52. DAILY?VITE [Concomitant]
     Route: 048
     Dates: start: 20200803, end: 20201023
  53. FOSRENOL [Concomitant]
     Active Substance: LANTHANUM CARBONATE
     Dosage: WITH MEALS
     Dates: start: 20180108, end: 20180221
  54. LACTULOSE. [Concomitant]
     Active Substance: LACTULOSE
     Dates: start: 20170804, end: 20170830
  55. LACTULOSE. [Concomitant]
     Active Substance: LACTULOSE
     Dates: start: 20171122, end: 20180221
  56. LUBIPROSTONE [Concomitant]
     Active Substance: LUBIPROSTONE
     Dates: start: 20171020, end: 20171220
  57. MIDODRINE [Concomitant]
     Active Substance: MIDODRINE
     Dates: start: 20171115, end: 20180205
  58. MIDODRINE [Concomitant]
     Active Substance: MIDODRINE
     Dates: start: 20181010, end: 20190102
  59. MIDODRINE [Concomitant]
     Active Substance: MIDODRINE
     Dates: start: 20201026, end: 20201028
  60. PREGABALIN. [Concomitant]
     Active Substance: PREGABALIN
     Dates: start: 20200617, end: 20201028
  61. SENSIPAR [Concomitant]
     Active Substance: CINACALCET HYDROCHLORIDE
     Dates: start: 20180108, end: 20180108
  62. SENSIPAR [Concomitant]
     Active Substance: CINACALCET HYDROCHLORIDE
     Dates: start: 20180221, end: 20180402
  63. SENSIPAR [Concomitant]
     Active Substance: CINACALCET HYDROCHLORIDE
     Dates: start: 20180725, end: 20180725
  64. SENSIPAR [Concomitant]
     Active Substance: CINACALCET HYDROCHLORIDE
     Dates: start: 20190605, end: 20200413
  65. SENSIPAR [Concomitant]
     Active Substance: CINACALCET HYDROCHLORIDE
     Dates: start: 20200819, end: 20201023
  66. VELTASSA [Suspect]
     Active Substance: PATIROMER
     Route: 048
     Dates: start: 20190102, end: 20190401
  67. VELTASSA [Suspect]
     Active Substance: PATIROMER
     Route: 048
     Dates: start: 20200408, end: 20200408
  68. TRAMADOL HCL [Concomitant]
     Active Substance: TRAMADOL HYDROCHLORIDE
     Indication: PAIN
     Dates: start: 20151228, end: 20180221
  69. RENVELA [Concomitant]
     Active Substance: SEVELAMER CARBONATE
     Dosage: WITH MEALS
     Dates: start: 20160907, end: 20160907
  70. RENVELA [Concomitant]
     Active Substance: SEVELAMER CARBONATE
     Dosage: WITH MEALS
     Dates: start: 20171011, end: 20180221
  71. RENA?VITE [Concomitant]
     Active Substance: ASCORBIC ACID\BIOTIN\CALCIUM PANTOTHENATE\CYANOCOBALAMIN\FOLIC ACID\NIACINAMIDE\PYRIDOXINE HYDROCHLORIDE\RIBOFLAVIN\THIAMINE MONONITRATE
     Dates: start: 20150916, end: 20180221
  72. NITROSTAT [Concomitant]
     Active Substance: NITROGLYCERIN
     Route: 060
     Dates: start: 20180221, end: 20180314
  73. KAYEXALATE [Concomitant]
     Active Substance: SODIUM POLYSTYRENE SULFONATE
     Dates: start: 20180221, end: 20180817
  74. GABAPENTIN. [Concomitant]
     Active Substance: GABAPENTIN
     Dosage: AT BEDTIME
     Dates: start: 20160518, end: 20170127
  75. GABAPENTIN. [Concomitant]
     Active Substance: GABAPENTIN
     Dosage: AT BEDTIME
     Dates: start: 20170215, end: 20180221
  76. GABAPENTIN. [Concomitant]
     Active Substance: GABAPENTIN
     Dosage: AT BEDTIME
     Dates: start: 20190315, end: 20200323
  77. GABAPENTIN. [Concomitant]
     Active Substance: GABAPENTIN
     Dosage: AT BEDTIME
     Dates: start: 20200323, end: 20200520
  78. ATORVASTATIN CALCIUM. [Concomitant]
     Active Substance: ATORVASTATIN CALCIUM
     Dosage: AT BEDTIME
     Dates: start: 20191223, end: 20201028
  79. CALCIUM ACETATE. [Concomitant]
     Active Substance: CALCIUM ACETATE
     Dates: start: 20201130, end: 20201218
  80. DAILY?VITE [Concomitant]
     Route: 048
     Dates: start: 20190612, end: 20190708
  81. DAILY?VITE [Concomitant]
     Route: 048
     Dates: start: 20190708, end: 20200117
  82. FOSRENOL [Concomitant]
     Active Substance: LANTHANUM CARBONATE
     Dosage: WITH MEALS
     Dates: start: 20180221, end: 20190102
  83. LUBIPROSTONE [Concomitant]
     Active Substance: LUBIPROSTONE
     Dates: start: 20180205, end: 20180221
  84. NORCO [Concomitant]
     Active Substance: ACETAMINOPHEN\HYDROCODONE BITARTRATE
     Dates: start: 20201130, end: 20210202
  85. PHOSLO [Concomitant]
     Active Substance: CALCIUM ACETATE
     Dosage: WITH MEALS
     Dates: start: 20190731, end: 20201028
  86. PLAVIX [Concomitant]
     Active Substance: CLOPIDOGREL BISULFATE
     Dates: start: 20151228, end: 20180221
  87. PLAVIX [Concomitant]
     Active Substance: CLOPIDOGREL BISULFATE
     Dates: start: 20151228, end: 20180221
  88. SENSIPAR [Concomitant]
     Active Substance: CINACALCET HYDROCHLORIDE
     Dates: start: 20160907, end: 20160909
  89. SENSIPAR [Concomitant]
     Active Substance: CINACALCET HYDROCHLORIDE
     Dates: start: 20171206, end: 20171213
  90. SENSIPAR [Concomitant]
     Active Substance: CINACALCET HYDROCHLORIDE
     Dates: start: 20180425, end: 20180725
  91. TOPROL XL [Concomitant]
     Active Substance: METOPROLOL SUCCINATE
     Dates: start: 20190910, end: 20201026
  92. VELTASSA [Suspect]
     Active Substance: PATIROMER
     Route: 048
     Dates: start: 20190401, end: 20190513
  93. VELTASSA [Suspect]
     Active Substance: PATIROMER
     Route: 048
     Dates: start: 20200113, end: 20200408
  94. VELTASSA [Suspect]
     Active Substance: PATIROMER
     Route: 048
     Dates: start: 20200408, end: 20201028
  95. TYLENOL [Concomitant]
     Active Substance: ACETAMINOPHEN
     Dates: start: 20151228, end: 20180221
  96. RENVELA [Concomitant]
     Active Substance: SEVELAMER CARBONATE
     Dosage: WITH MEALS
     Dates: start: 20180221, end: 20180912
  97. RENVELA [Concomitant]
     Active Substance: SEVELAMER CARBONATE
     Dosage: WITH MEALS
     Dates: start: 20180912, end: 20181010
  98. MIDODRINE HCL [Concomitant]
     Active Substance: MIDODRINE HYDROCHLORIDE
  99. GABAPENTIN. [Concomitant]
     Active Substance: GABAPENTIN
     Dosage: AT BEDTIME
     Dates: start: 20151111, end: 20151218
  100. GABAPENTIN. [Concomitant]
     Active Substance: GABAPENTIN
     Dosage: AT BEDTIME
     Dates: start: 20151218, end: 20151228
  101. ERGOCALCIFEROL. [Concomitant]
     Active Substance: ERGOCALCIFEROL
     Dosage: 2K UI
     Dates: start: 20190102, end: 20201028
  102. ATORVASTATIN CALCIUM. [Concomitant]
     Active Substance: ATORVASTATIN CALCIUM
     Dosage: AT BEDTIME
     Dates: start: 20190102, end: 20191223
  103. DAILY?VITE [Concomitant]
     Route: 048
     Dates: start: 20190513, end: 20190612
  104. FOSRENOL [Concomitant]
     Active Substance: LANTHANUM CARBONATE
     Dosage: WITH MEALS
     Dates: start: 20190102, end: 20190731
  105. LACTULOSE. [Concomitant]
     Active Substance: LACTULOSE
     Dates: start: 20171122, end: 20171122
  106. LANTHANUM CARBONATE. [Concomitant]
     Active Substance: LANTHANUM CARBONATE
     Dates: start: 20201130, end: 20201130
  107. LUBIPROSTONE [Concomitant]
     Active Substance: LUBIPROSTONE
     Dates: start: 20180205, end: 20180205
  108. MIDODRINE [Concomitant]
     Active Substance: MIDODRINE
     Dates: start: 20190923, end: 20200226
  109. MIDODRINE [Concomitant]
     Active Substance: MIDODRINE
     Dates: start: 20200226, end: 20201026
  110. PLAVIX [Concomitant]
     Active Substance: CLOPIDOGREL BISULFATE
     Dates: start: 20190102, end: 20201028
  111. SENSIPAR [Concomitant]
     Active Substance: CINACALCET HYDROCHLORIDE
     Dates: start: 20171129, end: 20171206
  112. SENSIPAR [Concomitant]
     Active Substance: CINACALCET HYDROCHLORIDE
     Dates: start: 20171213, end: 20180108
  113. VELTASSA [Suspect]
     Active Substance: PATIROMER
     Indication: HYPERKALAEMIA
     Dosage: DISSOLVED 2 PACKETS OF 8.4 GRAMS IN 1/3 CUP OF WATER AND DRANK FULL AMOUNT DAILY.
     Route: 048
     Dates: start: 20160831
  114. VELTASSA [Suspect]
     Active Substance: PATIROMER
     Route: 048
     Dates: start: 20160729, end: 20180221
  115. VELTASSA [Suspect]
     Active Substance: PATIROMER
     Route: 048
     Dates: start: 20190513, end: 20191230
  116. VELTASSA [Suspect]
     Active Substance: PATIROMER
     Route: 048
     Dates: start: 20201202, end: 20201216
  117. RENVELA [Concomitant]
     Active Substance: SEVELAMER CARBONATE
     Dosage: WITH MEALS
     Dates: start: 20160907, end: 20170111
  118. RENVELA [Concomitant]
     Active Substance: SEVELAMER CARBONATE
     Dosage: WITH MEALS
     Dates: start: 20201130, end: 20201211
  119. NEPHPLEX RX [Concomitant]
     Active Substance: ASCORBIC ACID\BIOTIN\COBALAMIN\FOLIC ACID\NIACINAMIDE\PANTOTHENIC ACID\PYRIDOXINE HYDROCHLORIDE\RIBOFLAVIN\THIAMINE\ZINC OXIDE
     Dates: start: 20151228, end: 20170315
  120. LEXAPRO [Concomitant]
     Active Substance: ESCITALOPRAM OXALATE
     Dosage: AT BEDTIME
     Dates: start: 20180221, end: 20190102
  121. GABAPENTIN. [Concomitant]
     Active Substance: GABAPENTIN
     Dosage: AT BEDTIME
     Dates: start: 20180221, end: 20180314
  122. GABAPENTIN. [Concomitant]
     Active Substance: GABAPENTIN
     Dosage: AT BEDTIME
     Dates: start: 20201130, end: 20210202
  123. ERGOCALCIFEROL. [Concomitant]
     Active Substance: ERGOCALCIFEROL
     Dates: start: 20150918, end: 20170215
  124. FOSRENOL [Concomitant]
     Active Substance: LANTHANUM CARBONATE
     Dosage: WITH MEALS
     Dates: start: 20171011, end: 20180108
  125. FOSRENOL [Concomitant]
     Active Substance: LANTHANUM CARBONATE
     Dosage: WITH MEALS
     Dates: start: 20200408, end: 20200612
  126. LACTULOSE. [Concomitant]
     Active Substance: LACTULOSE
     Indication: CONSTIPATION
     Dates: start: 20170531, end: 20170628
  127. MIDODRINE [Concomitant]
     Active Substance: MIDODRINE
     Dates: start: 20151028, end: 20151228
  128. MIDODRINE [Concomitant]
     Active Substance: MIDODRINE
     Dates: start: 20180205, end: 20180205
  129. MIDODRINE [Concomitant]
     Active Substance: MIDODRINE
     Dates: start: 20180221, end: 20181010
  130. MIDODRINE [Concomitant]
     Active Substance: MIDODRINE
     Dates: start: 20190102, end: 20190315
  131. MIDODRINE [Concomitant]
     Active Substance: MIDODRINE
     Dates: start: 20201130, end: 20210202
  132. NEURONTIN [Concomitant]
     Active Substance: GABAPENTIN
     Route: 048
     Dates: start: 20151111, end: 20151111
  133. PREGABALIN. [Concomitant]
     Active Substance: PREGABALIN
     Dates: start: 20200520, end: 20200617
  134. SENSIPAR [Concomitant]
     Active Substance: CINACALCET HYDROCHLORIDE
     Dates: start: 20201130, end: 20201130
  135. VELTASSA [Suspect]
     Active Substance: PATIROMER
     Route: 048
     Dates: start: 20180221, end: 20180425
  136. VELTASSA [Suspect]
     Active Substance: PATIROMER
     Route: 048
     Dates: start: 20201130, end: 20201202
  137. RENVELA [Concomitant]
     Active Substance: SEVELAMER CARBONATE
     Dates: start: 20151228, end: 20160511
  138. RENVELA [Concomitant]
     Active Substance: SEVELAMER CARBONATE
     Dosage: WITH MEALS
     Dates: start: 20170913, end: 20171011
  139. RENVELA [Concomitant]
     Active Substance: SEVELAMER CARBONATE
     Dosage: WITH MEALS
     Dates: start: 20190102, end: 20200413
  140. LEXAPRO [Concomitant]
     Active Substance: ESCITALOPRAM OXALATE
     Dosage: AT BEDTIME
     Dates: start: 20190102, end: 20190315
  141. GABAPENTIN. [Concomitant]
     Active Substance: GABAPENTIN
     Dosage: AT BEDTIME
     Dates: start: 20151228, end: 20160518
  142. GABAPENTIN. [Concomitant]
     Active Substance: GABAPENTIN
     Dosage: AT BEDTIME
     Dates: start: 20170215, end: 20170215
  143. GABAPENTIN. [Concomitant]
     Active Substance: GABAPENTIN
     Dosage: AT BEDTIME
     Dates: start: 20190102, end: 20190315
  144. ATORVASTATIN CALCIUM. [Concomitant]
     Active Substance: ATORVASTATIN CALCIUM
     Dosage: AT BEDTIME
     Dates: start: 20201130, end: 20210104
  145. ASPIRIN. [Concomitant]
     Active Substance: ASPIRIN
     Dates: start: 20151228, end: 20180221
  146. CALCIUM ACETATE. [Concomitant]
     Active Substance: CALCIUM ACETATE
     Dates: start: 20201218, end: 20210202
  147. FOSRENOL [Concomitant]
     Active Substance: LANTHANUM CARBONATE
     Dosage: WITH MEALS
     Dates: start: 20170913, end: 20171011
  148. FOSRENOL [Concomitant]
     Active Substance: LANTHANUM CARBONATE
     Dosage: WITH MEALS
     Dates: start: 20190731, end: 20200408
  149. LACTULOSE. [Concomitant]
     Active Substance: LACTULOSE
     Dates: start: 20170628, end: 20170804
  150. LUBIPROSTONE [Concomitant]
     Active Substance: LUBIPROSTONE
     Dates: start: 20171220, end: 20180205
  151. MIDODRINE [Concomitant]
     Active Substance: MIDODRINE
     Dates: start: 20180205, end: 20180214
  152. MIDODRINE [Concomitant]
     Active Substance: MIDODRINE
     Dates: start: 20190315, end: 20190923
  153. NEURONTIN [Concomitant]
     Active Substance: GABAPENTIN
     Route: 048
     Dates: start: 20151013, end: 20151111
  154. PHOSLO [Concomitant]
     Active Substance: CALCIUM ACETATE
     Dosage: WITH MEALS
     Dates: start: 20180912, end: 20181128
  155. PREGABALIN. [Concomitant]
     Active Substance: PREGABALIN
     Dates: start: 20201130, end: 20210202
  156. SENSIPAR [Concomitant]
     Active Substance: CINACALCET HYDROCHLORIDE
     Dates: start: 20160909, end: 20171129
  157. SENSIPAR [Concomitant]
     Active Substance: CINACALCET HYDROCHLORIDE
     Dates: start: 20201202, end: 20210202
  158. TYLENOL [Concomitant]
     Active Substance: ACETAMINOPHEN
     Indication: ARTHRALGIA
     Dosage: 8 HOUR
  159. RENVELA [Concomitant]
     Active Substance: SEVELAMER CARBONATE
     Dosage: WITH MEALS
     Dates: start: 20160511, end: 20160511
  160. RENVELA [Concomitant]
     Active Substance: SEVELAMER CARBONATE
     Dosage: WITH MEALS
     Dates: start: 20160712, end: 20160812
  161. RENVELA [Concomitant]
     Active Substance: SEVELAMER CARBONATE
     Dosage: WITH MEALS
     Dates: start: 20160812, end: 20160907
  162. RENVELA [Concomitant]
     Active Substance: SEVELAMER CARBONATE
     Dosage: WITH MEALS
     Dates: start: 20170118, end: 20170208
  163. RENVELA [Concomitant]
     Active Substance: SEVELAMER CARBONATE
     Dosage: WITH MEALS
     Dates: start: 20170208, end: 20170710
  164. RENVELA [Concomitant]
     Active Substance: SEVELAMER CARBONATE
     Dosage: WITH MEALS
     Dates: start: 20170710, end: 20170913
  165. RENA?VITE [Concomitant]
     Active Substance: ASCORBIC ACID\BIOTIN\CALCIUM PANTOTHENATE\CYANOCOBALAMIN\FOLIC ACID\NIACINAMIDE\PYRIDOXINE HYDROCHLORIDE\RIBOFLAVIN\THIAMINE MONONITRATE
     Dates: start: 20180221, end: 20181114
  166. METOPROLOL TARTRATE. [Concomitant]
     Active Substance: METOPROLOL TARTRATE
     Dates: start: 20151228, end: 20180221
  167. GABAPENTIN. [Concomitant]
     Active Substance: GABAPENTIN
     Dosage: AT BEDTIME
     Dates: start: 20180314, end: 20190102
  168. ATORVASTATIN CALCIUM. [Concomitant]
     Active Substance: ATORVASTATIN CALCIUM
     Dosage: AT BEDTIME
     Dates: start: 20151228, end: 20180221
  169. ATORVASTATIN CALCIUM. [Concomitant]
     Active Substance: ATORVASTATIN CALCIUM
     Dosage: AT BEDTIME
     Dates: start: 20210104, end: 20210202
  170. ASPIRIN. [Concomitant]
     Active Substance: ASPIRIN
     Dates: start: 20190102, end: 20201028
  171. BUPROPION. [Concomitant]
     Active Substance: BUPROPION
     Dates: start: 20171020, end: 20171020
  172. DAILY?VITE [Concomitant]
     Dates: start: 20180221, end: 20181114
  173. DAILY?VITE [Concomitant]
     Dates: start: 20181114, end: 20181114
  174. DAILY?VITE [Concomitant]
     Route: 048
     Dates: start: 20190612, end: 20190612
  175. DAILY?VITE [Concomitant]
     Route: 048
     Dates: start: 20200117, end: 20200226
  176. DAILY?VITE [Concomitant]
     Route: 048
     Dates: start: 20200226, end: 20200413
  177. FLOMAX [Concomitant]
     Active Substance: TAMSULOSIN HYDROCHLORIDE
     Dates: start: 20191217, end: 20191217
  178. LACTULOSE. [Concomitant]
     Active Substance: LACTULOSE
     Dates: start: 20170830, end: 20171122
  179. LUBIPROSTONE [Concomitant]
     Active Substance: LUBIPROSTONE
     Dates: start: 20190102, end: 20201028
  180. MIDODRINE [Concomitant]
     Active Substance: MIDODRINE
     Dates: start: 20151228, end: 20170104
  181. MIDODRINE [Concomitant]
     Active Substance: MIDODRINE
     Dates: start: 20171113, end: 20171115
  182. PHOSLO [Concomitant]
     Active Substance: CALCIUM ACETATE
     Dosage: WITH MEALS
     Dates: start: 20181128, end: 20190102
  183. PHOSLO [Concomitant]
     Active Substance: CALCIUM ACETATE
     Dosage: WITH MEALS
     Dates: start: 20190102, end: 20190731
  184. PLAVIX [Concomitant]
     Active Substance: CLOPIDOGREL BISULFATE
     Dates: start: 20180221, end: 20190102
  185. PREGABALIN. [Concomitant]
     Active Substance: PREGABALIN
     Dates: start: 20200520, end: 20200520
  186. SENSIPAR [Concomitant]
     Active Substance: CINACALCET HYDROCHLORIDE
     Dates: start: 20180108, end: 20180214
  187. SENSIPAR [Concomitant]
     Active Substance: CINACALCET HYDROCHLORIDE
     Dates: start: 20180402, end: 20180425
  188. SENSIPAR [Concomitant]
     Active Substance: CINACALCET HYDROCHLORIDE
     Dates: start: 20200413, end: 20200819
  189. VELTASSA [Suspect]
     Active Substance: PATIROMER
     Route: 048
     Dates: start: 20201202, end: 20201202

REACTIONS (2)
  - Death [Fatal]
  - Constipation [Unknown]
